FAERS Safety Report 4836165-7 (Version None)
Quarter: 2005Q4

REPORT INFORMATION
  Report Type: 
  Country: None (occurrence: None)
  Receive Date: 20051123
  Receipt Date: 20051113
  Transmission Date: 20060501
  Serious: Yes (Hospitalization)
  Sender: FDA-Public Use
  Company Number: US-KINGPHARMUSA00001-K200501490

PATIENT
  Age: 34 Year
  Sex: Male

DRUGS (3)
  1. PITRESSIN [Suspect]
     Indication: HYPOTENSION
  2. NOREPINEPHRINE [Concomitant]
     Indication: HYPOTENSION
  3. ANTIFUNGALS [Concomitant]
     Indication: FUNGAL SKIN INFECTION

REACTIONS (4)
  - DIABETES INSIPIDUS [None]
  - HYPERNATRAEMIA [None]
  - IATROGENIC INJURY [None]
  - POLYURIA [None]
